FAERS Safety Report 13450966 (Version 1)
Quarter: 2017Q2

REPORT INFORMATION
  Report Type: Spontaneous
  Country: US (occurrence: US)
  Receive Date: 20170417
  Receipt Date: 20170417
  Transmission Date: 20170830
  Serious: Yes (Other)
  Sender: FDA-Public Use
  Company Number: None

PATIENT
  Age: 58 Year
  Sex: Male
  Weight: 73.8 kg

DRUGS (26)
  1. DIPHENHYDRAMINE. [Concomitant]
     Active Substance: DIPHENHYDRAMINE
  2. METOPROLOL TART [Concomitant]
     Active Substance: METOPROLOL TARTRATE
  3. TESTOSTERONE CYPIONATE. [Concomitant]
     Active Substance: TESTOSTERONE CYPIONATE
  4. TRICOR [Concomitant]
     Active Substance: FENOFIBRATE
  5. LAMICTAL [Concomitant]
     Active Substance: LAMOTRIGINE
  6. SYMBICORT [Concomitant]
     Active Substance: BUDESONIDE\FORMOTEROL FUMARATE DIHYDRATE
  7. RANITIDINE. [Concomitant]
     Active Substance: RANITIDINE
  8. FLOMAX [Concomitant]
     Active Substance: TAMSULOSIN HYDROCHLORIDE
  9. PROAIR HFA [Concomitant]
     Active Substance: ALBUTEROL SULFATE
  10. ACETAMINOPHEN. [Concomitant]
     Active Substance: ACETAMINOPHEN
  11. AMLODIPINE [Concomitant]
     Active Substance: AMLODIPINE BESYLATE
  12. FETZIMA [Concomitant]
     Active Substance: LEVOMILNACIPRAN HYDROCHLORIDE
  13. TOPAMAX [Concomitant]
     Active Substance: TOPIRAMATE
  14. RANEXA [Concomitant]
     Active Substance: RANOLAZINE
  15. ISOSORBIDE DINITRATE. [Concomitant]
     Active Substance: ISOSORBIDE DINITRATE
  16. MEDROL [Concomitant]
     Active Substance: METHYLPREDNISOLONE
  17. PERCOCET [Concomitant]
     Active Substance: ACETAMINOPHEN\OXYCODONE HYDROCHLORIDE
  18. QUINAPRIL. [Concomitant]
     Active Substance: QUINAPRIL
  19. DIAZEPAM. [Concomitant]
     Active Substance: DIAZEPAM
  20. NAMENDA [Concomitant]
     Active Substance: MEMANTINE HYDROCHLORIDE
  21. ASPIRIN. [Concomitant]
     Active Substance: ASPIRIN
  22. OXYCONTIN [Concomitant]
     Active Substance: OXYCODONE HYDROCHLORIDE
  23. SOMA [Concomitant]
     Active Substance: CARISOPRODOL
  24. SINGULAIR [Concomitant]
     Active Substance: MONTELUKAST SODIUM
  25. HIZENTRA [Suspect]
     Active Substance: HUMAN IMMUNOGLOBULIN G
     Indication: IMMUNODEFICIENCY COMMON VARIABLE
     Dosage: ?          OTHER FREQUENCY:WEEKLY;?
     Route: 058
     Dates: start: 20170405, end: 20170417
  26. CELEBREX [Concomitant]
     Active Substance: CELECOXIB

REACTIONS (4)
  - Haematoma [None]
  - Generalised erythema [None]
  - Rash generalised [None]
  - Musculoskeletal disorder [None]

NARRATIVE: CASE EVENT DATE: 20170417
